FAERS Safety Report 13357636 (Version 2)
Quarter: 2018Q1

REPORT INFORMATION
  Report Type: Spontaneous
  Country: US (occurrence: US)
  Receive Date: 20170322
  Receipt Date: 20180322
  Transmission Date: 20180508
  Serious: No
  Sender: FDA-Public Use
  Company Number: US-TEVA-729480ACC

PATIENT
  Age: 63 Year
  Sex: Female
  Weight: 86 kg

DRUGS (4)
  1. ROBAXIN [Concomitant]
     Active Substance: METHOCARBAMOL
  2. XANAX [Concomitant]
     Active Substance: ALPRAZOLAM
  3. ACETAMINOPHEN AND CODEINE [Suspect]
     Active Substance: ACETAMINOPHEN\CODEINE PHOSPHATE
     Indication: PAIN
     Dosage: 4 DOSAGE FORMS DAILY; ACETAMINOPHEN 300 MG + CODEINE 30 MG
     Dates: start: 201603, end: 201612
  4. CELEXA [Concomitant]
     Active Substance: CITALOPRAM HYDROBROMIDE

REACTIONS (1)
  - Drug screen false positive [Unknown]

NARRATIVE: CASE EVENT DATE: 20161214
